FAERS Safety Report 9956956 (Version 1)
Quarter: 2014Q1

REPORT INFORMATION
  Report Type: Report from Study
  Country: US (occurrence: US)
  Receive Date: 20140304
  Receipt Date: 20140304
  Transmission Date: 20141002
  Serious: Yes (Other)
  Sender: FDA-Public Use
  Company Number: US-ABBVIE-13P-163-1097187-00

PATIENT
  Age: 38 Year
  Sex: Female

DRUGS (14)
  1. HUMIRA [Suspect]
     Indication: RHEUMATOID ARTHRITIS
     Dates: start: 201204
  2. HUMIRA [Suspect]
     Dosage: WEEKLY
     Dates: start: 201304
  3. HUMIRA [Suspect]
     Dates: start: 20130527
  4. PREDNISONE [Suspect]
     Indication: RHEUMATOID ARTHRITIS
     Dosage: 5 MG DAILY
     Dates: start: 201212
  5. PREDNISONE [Suspect]
     Dosage: 10 MG DAILY
  6. PREDNISONE [Suspect]
     Dosage: 15 MG DAILY
  7. PREDNISONE [Suspect]
     Dosage: WORKED UP TO 20 MG DAILY
  8. PREDNISONE [Suspect]
     Dosage: TAPERED DOWN; STARTED 3 WEEKS AGO
  9. LEVOTHYROXINE [Concomitant]
     Indication: AUTOIMMUNE THYROIDITIS
     Dosage: 175 MCG 1 TAB DAILY
  10. LEVOTHYROXINE [Concomitant]
     Indication: THYROIDECTOMY
  11. JOLASSA [Concomitant]
     Indication: CONTRACEPTION
  12. CITALOPRAM [Concomitant]
     Indication: PANIC ATTACK
     Dosage: 20 MG 1 TAB DAILY
  13. BYSTOLIC [Concomitant]
     Indication: HYPERTENSION
     Dosage: 20 MG 1 TAB DAILY
  14. MULTIVITAMIN [Concomitant]
     Indication: PRODUCT USED FOR UNKNOWN INDICATION

REACTIONS (10)
  - Nephrolithiasis [Recovered/Resolved]
  - Fall [Not Recovered/Not Resolved]
  - Upper limb fracture [Not Recovered/Not Resolved]
  - Rheumatoid arthritis [Not Recovered/Not Resolved]
  - Joint swelling [Not Recovered/Not Resolved]
  - Arthralgia [Not Recovered/Not Resolved]
  - Insomnia [Recovered/Resolved]
  - Increased appetite [Recovered/Resolved]
  - Kidney infection [Recovered/Resolved]
  - Pharyngitis streptococcal [Not Recovered/Not Resolved]
